FAERS Safety Report 16701969 (Version 1)
Quarter: 2019Q3

REPORT INFORMATION
  Report Type: Spontaneous
  Country: US (occurrence: US)
  Receive Date: 20190627
  Receipt Date: 20190627
  Transmission Date: 20191004
  Serious: Yes (Hospitalization)
  Sender: FDA-Public Use
  Company Number: None

PATIENT
  Age: 30 Year
  Sex: Male

DRUGS (1)
  1. KALYDECO [Suspect]
     Active Substance: IVACAFTOR

REACTIONS (3)
  - Insurance issue [None]
  - Infective pulmonary exacerbation of cystic fibrosis [None]
  - Product dose omission [None]

NARRATIVE: CASE EVENT DATE: 20190617
